APPROVED DRUG PRODUCT: EQUAGESIC
Active Ingredient: ASPIRIN; MEPROBAMATE
Strength: 325MG;200MG
Dosage Form/Route: TABLET;ORAL
Application: N011702 | Product #003
Applicant: SUN PHARMACEUTICAL INDUSTRIES INC
Approved: Dec 29, 1983 | RLD: No | RS: No | Type: DISCN